FAERS Safety Report 20883704 (Version 2)
Quarter: 2022Q2

REPORT INFORMATION
  Report Type: Spontaneous
  Country: US (occurrence: US)
  Receive Date: 20220527
  Receipt Date: 20220603
  Transmission Date: 20220721
  Serious: Yes (Hospitalization, Other)
  Sender: FDA-Public Use
  Company Number: US-TORRENT-00011875

PATIENT
  Age: 89 Year
  Sex: Female

DRUGS (3)
  1. DROPERIDOL [Interacting]
     Active Substance: DROPERIDOL
     Indication: Mental status changes
     Dosage: 5 MG TOTAL
     Route: 065
  2. LORAZEPAM [Interacting]
     Active Substance: LORAZEPAM
     Indication: Mental status changes
     Dosage: 2 MG
  3. OLANZAPINE [Interacting]
     Active Substance: OLANZAPINE
     Indication: Mental status changes
     Dosage: 10 MG TOTAL
     Route: 065

REACTIONS (3)
  - Extrapyramidal disorder [Recovered/Resolved]
  - Ataxia [Recovering/Resolving]
  - Drug interaction [Unknown]
